FAERS Safety Report 4683065-1 (Version None)
Quarter: 2005Q2

REPORT INFORMATION
  Report Type: 
  Country: None (occurrence: None)
  Receive Date: 20050602
  Receipt Date: 20050323
  Transmission Date: 20051028
  Serious: No
  Sender: FDA-Public Use
  Company Number: USA050393905

PATIENT
  Age: 58 Year
  Sex: Female

DRUGS (4)
  1. CYMBALTA [Suspect]
     Indication: NEUROPATHIC PAIN
     Dosage: 30 MG DAY
     Dates: start: 20041201
  2. MORPHINE [Concomitant]
  3. LAXATIVE NOS [Concomitant]
  4. PREVACID [Concomitant]

REACTIONS (10)
  - CONSTIPATION [None]
  - DIZZINESS [None]
  - FLATULENCE [None]
  - GASTROINTESTINAL DISORDER [None]
  - HEART RATE IRREGULAR [None]
  - MEMORY IMPAIRMENT [None]
  - TREMOR [None]
  - URINARY HESITATION [None]
  - VISION BLURRED [None]
  - WEIGHT DECREASED [None]
